FAERS Safety Report 7996997-3 (Version None)
Quarter: 2011Q4

REPORT INFORMATION
  Report Type: 
  Country: None (occurrence: None)
  Receive Date: 20111221
  Receipt Date: 20111214
  Transmission Date: 20120403
  Serious: No
  Sender: FDA-Public Use
  Company Number: PHHY2011CA81609

PATIENT
  Sex: Female

DRUGS (2)
  1. CELEXA [Concomitant]
     Dosage: UNK UKN, QD
  2. GILENYA [Suspect]
     Indication: RELAPSING-REMITTING MULTIPLE SCLEROSIS
     Dosage: 0.5 MG, QD
     Route: 048
     Dates: start: 20110906

REACTIONS (10)
  - HEADACHE [None]
  - VISION BLURRED [None]
  - MULTIPLE SCLEROSIS RELAPSE [None]
  - HYPOTENSION [None]
  - DYSPEPSIA [None]
  - ASTHENIA [None]
  - ORAL HERPES [None]
  - FEELING ABNORMAL [None]
  - HYPOAESTHESIA [None]
  - DIZZINESS [None]
